FAERS Safety Report 17104493 (Version 1)
Quarter: 2019Q4

REPORT INFORMATION
  Report Type: Spontaneous
  Country: US (occurrence: US)
  Receive Date: 20191107
  Receipt Date: 20191107
  Transmission Date: 20200122
  Serious: Yes (Hospitalization)
  Sender: FDA-Public Use
  Company Number: None

PATIENT
  Age: 43 Year
  Sex: Male

DRUGS (11)
  1. KEPPRA [Concomitant]
     Active Substance: LEVETIRACETAM
  2. MIRALAX [Concomitant]
     Active Substance: POLYETHYLENE GLYCOL 3350
  3. SULFATRIM PD [Concomitant]
  4. VIGABATRIN 500MG [Suspect]
     Active Substance: VIGABATRIN
     Indication: CONVERSION DISORDER
     Route: 048
     Dates: start: 20190424
  5. SABRIL [Concomitant]
     Active Substance: VIGABATRIN
  6. DIAZEPAM. [Concomitant]
     Active Substance: DIAZEPAM
  7. NORCO [Concomitant]
     Active Substance: ACETAMINOPHEN\HYDROCODONE BITARTRATE
  8. ROBITUSSIN (GUAIFENESIN) [Concomitant]
     Active Substance: GUAIFENESIN
  9. LAMICTAL XR [Concomitant]
     Active Substance: LAMOTRIGINE
  10. IBUPROFEN. [Concomitant]
     Active Substance: IBUPROFEN
  11. ZYRTEC ALLGY [Concomitant]

REACTIONS (1)
  - Pneumonia [None]

NARRATIVE: CASE EVENT DATE: 201911
